FAERS Safety Report 13156524 (Version 1)
Quarter: 2017Q1

REPORT INFORMATION
  Report Type: Spontaneous
  Country: US (occurrence: US)
  Receive Date: 20170126
  Receipt Date: 20170126
  Transmission Date: 20170428
  Serious: Yes (Other)
  Sender: FDA-Public Use
  Company Number: US-LUNDBECK-DKLU2025364

PATIENT
  Sex: Female

DRUGS (3)
  1. ONFI [Suspect]
     Active Substance: CLOBAZAM
     Indication: EPILEPSY
     Route: 048
  2. DEPAKOTE [Concomitant]
     Active Substance: DIVALPROEX SODIUM
     Indication: PRODUCT USED FOR UNKNOWN INDICATION
     Route: 065
  3. BRIVIACT [Concomitant]
     Active Substance: BRIVARACETAM
     Indication: PRODUCT USED FOR UNKNOWN INDICATION
     Route: 065

REACTIONS (11)
  - Weight increased [Unknown]
  - Irritability [Unknown]
  - Fall [Unknown]
  - Alopecia [Unknown]
  - Increased appetite [Unknown]
  - Anxiety [Unknown]
  - Apnoeic attack [Unknown]
  - Seizure [Unknown]
  - Balance disorder [Unknown]
  - Condition aggravated [Unknown]
  - Mood altered [Unknown]
